FAERS Safety Report 7580773-X (Version None)
Quarter: 2011Q2

REPORT INFORMATION
  Report Type: 
  Country: None (occurrence: None)
  Receive Date: 20110629
  Receipt Date: 20110615
  Transmission Date: 20111010
  Serious: Yes (Hospitalization)
  Sender: FDA-Public Use
  Company Number: SK-GENENTECH-315852

PATIENT
  Sex: Female

DRUGS (6)
  1. DETRALEX [Concomitant]
     Indication: HYPERTENSION
     Dosage: UNK
     Dates: start: 20040101
  2. RANIBIZUMAB [Suspect]
     Dosage: 50 A?L, UNKNOWN
     Route: 031
     Dates: start: 20100628
  3. LEXAURIN [Concomitant]
     Indication: HYPERTENSION
     Dosage: UNK
     Dates: start: 20100812
  4. BISOPROLOL FUMARATE [Concomitant]
     Indication: HYPERTENSION
     Dosage: UNK
     Dates: start: 20050101
  5. RANIBIZUMAB [Suspect]
     Indication: AGE-RELATED MACULAR DEGENERATION
     Dosage: UNK UNK, UNKNOWN
     Route: 031
     Dates: start: 20091012
  6. TRANDOLAPRIL [Concomitant]
     Indication: HYPERTENSION
     Dosage: UNK
     Dates: start: 20081001

REACTIONS (1)
  - HYPERTENSION [None]
